FAERS Safety Report 7621177-0 (Version None)
Quarter: 2011Q3

REPORT INFORMATION
  Report Type: 
  Country: None (occurrence: None)
  Receive Date: 20110719
  Receipt Date: 20110711
  Transmission Date: 20111222
  Serious: Yes (Hospitalization)
  Sender: FDA-Public Use
  Company Number: IE-BAXTER-2011BH001285

PATIENT
  Age: 55 Year
  Sex: Female
  Weight: 88 kg

DRUGS (4)
  1. EXTRANEAL [Suspect]
     Route: 033
     Dates: start: 20100623
  2. DIANEAL [Suspect]
     Indication: PERITONEAL DIALYSIS
     Route: 033
     Dates: start: 20100623
  3. DIANEAL [Suspect]
     Route: 033
     Dates: start: 20100623
  4. EXTRANEAL [Suspect]
     Indication: PERITONEAL DIALYSIS
     Route: 033
     Dates: start: 20100623

REACTIONS (2)
  - DYSPNOEA [None]
  - ABDOMINAL DISTENSION [None]
